FAERS Safety Report 4354925-6 (Version None)
Quarter: 2004Q2

REPORT INFORMATION
  Report Type: 
  Country: None (occurrence: None)
  Receive Date: 20040504
  Receipt Date: 20040423
  Transmission Date: 20050107
  Serious: No
  Sender: FDA-Public Use
  Company Number: 2004-115451-NL

PATIENT
  Age: 28 Year
  Sex: Male

DRUGS (5)
  1. MIRTAZAPINE [Suspect]
     Dosage: DF; NI
     Dates: start: 20040227
  2. INSULIN ASPART [Concomitant]
  3. MACROGOL [Concomitant]
  4. TYLEX [Concomitant]
  5. INSULIN GLARGINE [Concomitant]

REACTIONS (2)
  - BLOOD GLUCOSE INCREASED [None]
  - INSULIN RESISTANCE [None]
